FAERS Safety Report 6688163-9 (Version None)
Quarter: 2010Q2

REPORT INFORMATION
  Report Type: 
  Country: None (occurrence: None)
  Receive Date: 20100420
  Receipt Date: 20100415
  Transmission Date: 20101027
  Serious: Yes (Death)
  Sender: FDA-Public Use
  Company Number: JP-SANOFI-AVENTIS-2010SA022001

PATIENT
  Age: 72 Year
  Sex: Male
  Weight: 49.9 kg

DRUGS (13)
  1. PLAVIX [Suspect]
     Indication: ANGINA UNSTABLE
     Route: 048
     Dates: start: 20091107
  2. ASPIRIN [Concomitant]
     Indication: ANGINA UNSTABLE
     Route: 048
     Dates: start: 20091107
  3. AMARYL [Concomitant]
     Route: 048
  4. DIART [Concomitant]
     Route: 048
     Dates: start: 20080709
  5. AMLODIPINE BESYLATE [Concomitant]
     Route: 048
  6. FLUITRAN [Concomitant]
     Route: 048
     Dates: start: 20080709
  7. MEVALOTIN [Concomitant]
     Route: 048
  8. ALFACALCIDOL [Concomitant]
     Route: 048
     Dates: start: 20090226
  9. BASEN [Concomitant]
     Route: 048
  10. CALCIUM POLYSTYRENE SULFONATE [Concomitant]
     Route: 048
     Dates: start: 20080709
  11. LIDOCAINE [Concomitant]
     Route: 062
     Dates: start: 20090702
  12. RENAGEL [Concomitant]
     Route: 048
     Dates: start: 20091105
  13. ALOSENN [Concomitant]
     Route: 048
     Dates: start: 20081120

REACTIONS (1)
  - DEATH [None]
